FAERS Safety Report 25441589 (Version 1)
Quarter: 2025Q2

REPORT INFORMATION
  Report Type: Spontaneous
  Country: ES (occurrence: ES)
  Receive Date: 20250616
  Receipt Date: 20250616
  Transmission Date: 20250716
  Serious: Yes (Other)
  Sender: ABBVIE
  Company Number: ES-ABBVIE-6324795

PATIENT
  Age: 72 Year
  Sex: Male

DRUGS (3)
  1. SILODOSIN [Suspect]
     Active Substance: SILODOSIN
     Indication: Prostatism
     Route: 048
     Dates: start: 20230531
  2. LOPID [Concomitant]
     Active Substance: GEMFIBROZIL
     Indication: Product used for unknown indication
     Route: 048
     Dates: start: 20240625
  3. Bromazepam normon [Concomitant]
     Indication: Product used for unknown indication
     Route: 048
     Dates: start: 20210407

REACTIONS (2)
  - Pupillary light reflex tests abnormal [Recovered/Resolved]
  - Floppy iris syndrome [Recovered/Resolved]

NARRATIVE: CASE EVENT DATE: 20250402
